FAERS Safety Report 4715583-1 (Version None)
Quarter: 2005Q3

REPORT INFORMATION
  Report Type: 
  Country: None (occurrence: None)
  Receive Date: 20050713
  Receipt Date: 20050701
  Transmission Date: 20060218
  Serious: Yes (Hospitalization)
  Sender: FDA-Public Use
  Company Number: 2005FR-00069

PATIENT
  Age: 64 Year
  Sex: Female
  Weight: 80 kg

DRUGS (5)
  1. METFORMIN [Suspect]
     Indication: DIABETES MELLITUS NON-INSULIN-DEPENDENT
     Dosage: 500MG, QID, ORAL
     Route: 048
     Dates: start: 19940101
  2. ORLISTAT [Concomitant]
  3. CIMETIDINE [Concomitant]
  4. AMILORIDE HCL AND HYDROCHLOROTHIAZIDE [Concomitant]
  5. ASPIRIN [Concomitant]

REACTIONS (17)
  - ABDOMINAL PAIN [None]
  - ACUTE PRERENAL FAILURE [None]
  - AGITATION [None]
  - ASTHENIA [None]
  - CIRCULATORY COLLAPSE [None]
  - DEPRESSED LEVEL OF CONSCIOUSNESS [None]
  - DIARRHOEA [None]
  - DIZZINESS [None]
  - DRUG INTERACTION [None]
  - DYSARTHRIA [None]
  - LACTIC ACIDOSIS [None]
  - METABOLIC ACIDOSIS [None]
  - PEPTIC ULCER REACTIVATED [None]
  - RENAL FAILURE [None]
  - RENAL FAILURE ACUTE [None]
  - VISION BLURRED [None]
  - VOMITING [None]
